FAERS Safety Report 8289250-4 (Version None)
Quarter: 2012Q2

REPORT INFORMATION
  Report Type: 
  Country: None (occurrence: None)
  Receive Date: 20120417
  Receipt Date: 20120411
  Transmission Date: 20120825
  Serious: Yes (Hospitalization, Other)
  Sender: FDA-Public Use
  Company Number: PHHY2011AU116004

PATIENT
  Sex: Female

DRUGS (5)
  1. LEVOTHYROXINE SODIUM [Concomitant]
     Route: 048
  2. ZOLEDRONOC ACID [Suspect]
     Indication: OSTEOPOROSIS
     Dosage: 5 MG, UNK
     Route: 042
     Dates: start: 20090714
  3. RAMIPRIL [Concomitant]
     Route: 048
  4. PAROXETINE HCL [Concomitant]
     Route: 048
  5. VITAMIN D [Concomitant]
     Route: 048

REACTIONS (1)
  - BREAST CANCER [None]
